FAERS Safety Report 21271789 (Version 3)
Quarter: 2023Q1

REPORT INFORMATION
  Report Type: Spontaneous
  Country: IT (occurrence: IT)
  Receive Date: 20220830
  Receipt Date: 20230201
  Transmission Date: 20230418
  Serious: Yes (Hospitalization, Other)
  Sender: FDA-Public Use
  Company Number: IT-DOCGEN-2201453

PATIENT
  Age: 93 Year
  Sex: Female

DRUGS (14)
  1. CLOPIDOGREL BISULFATE [Suspect]
     Active Substance: CLOPIDOGREL BISULFATE
     Dosage: 75 MG, QD
  2. SIMVASTATIN [Suspect]
     Active Substance: SIMVASTATIN
     Dosage: 40 MG, QD
  3. SIMVASTATIN [Suspect]
     Active Substance: SIMVASTATIN
     Dosage: 20 MG
  4. SIMVASTATIN [Suspect]
     Active Substance: SIMVASTATIN
     Dosage: 20 MG
  5. PANTOPRAZOLE [Suspect]
     Active Substance: PANTOPRAZOLE
     Dosage: 40 MG, QD
  6. AMLODIPINE [Suspect]
     Active Substance: AMLODIPINE BESYLATE
     Dosage: 10 MG, QD
  7. ASPIRIN [Suspect]
     Active Substance: ASPIRIN
     Dosage: 30 MG, QD
  8. ASPIRIN [Suspect]
     Active Substance: ASPIRIN
     Dosage: 100 MG
  9. METOPROLOL [Concomitant]
     Active Substance: METOPROLOL
     Dosage: 100 MG, QD
  10. METOPROLOL [Concomitant]
     Active Substance: METOPROLOL
     Dosage: 25 MG
  11. LEVOTHYROXINE [Concomitant]
     Active Substance: LEVOTHYROXINE
     Dosage: 1 DF(75 1 CP)
  12. LEVOTHYROXINE [Concomitant]
     Active Substance: LEVOTHYROXINE
     Dosage: 75 1 CP
  13. LOSARTAN [Concomitant]
     Active Substance: LOSARTAN
     Dosage: 0.5 DF(50 1/2 CP A DAY)
  14. ISOSORBIDE MONONITRATE [Concomitant]
     Active Substance: ISOSORBIDE MONONITRATE
     Dosage: 20 MG, BID

REACTIONS (18)
  - Cardiorenal syndrome [Recovering/Resolving]
  - Renal failure [Recovering/Resolving]
  - Mitral valve incompetence [Recovered/Resolved]
  - Condition aggravated [Recovered/Resolved]
  - Cardiac failure acute [Recovered/Resolved]
  - Pulmonary oedema [Recovered/Resolved]
  - Rash erythematous [Recovered/Resolved]
  - Sodium retention [Recovered/Resolved]
  - Mitral valve stenosis [Recovered/Resolved]
  - Pulmonary oedema [Recovered/Resolved]
  - Dyspnoea paroxysmal nocturnal [Recovered/Resolved]
  - Oedema peripheral [Unknown]
  - Dyspnoea at rest [Unknown]
  - Peripheral swelling [Unknown]
  - Sinus tachycardia [Recovered/Resolved]
  - Pleural effusion [Unknown]
  - Pulmonary hypertension [Unknown]
  - Inferior vena cava dilatation [Unknown]
